FAERS Safety Report 6913958-3 (Version None)
Quarter: 2010Q3

REPORT INFORMATION
  Report Type: 
  Country: None (occurrence: None)
  Receive Date: 20100809
  Receipt Date: 20100729
  Transmission Date: 20110219
  Serious: Yes (Other)
  Sender: FDA-Public Use
  Company Number: CA-JNJFOC-20091006841

PATIENT
  Sex: Female
  Weight: 52 kg

DRUGS (4)
  1. REMICADE [Suspect]
     Indication: CROHN'S DISEASE
     Route: 042
     Dates: start: 20080701
  2. REMICADE [Suspect]
     Route: 042
     Dates: start: 20080701
  3. REMICADE [Suspect]
     Route: 042
     Dates: start: 20080701
  4. HYDROCORTISONE [Concomitant]
     Indication: PREMEDICATION
     Dosage: 15-30 MINUTES PRIOR TO INFUSION
     Route: 042

REACTIONS (2)
  - BASAL CELL CARCINOMA [None]
  - DRUG EXPOSURE DURING PREGNANCY [None]
